FAERS Safety Report 7537203-3 (Version None)
Quarter: 2011Q2

REPORT INFORMATION
  Report Type: 
  Country: None (occurrence: None)
  Receive Date: 20110524
  Receipt Date: 20110415
  Transmission Date: 20111010
  Serious: No
  Sender: FDA-Public Use
  Company Number: 030352

PATIENT
  Sex: Female
  Weight: 72.1 kg

DRUGS (10)
  1. BENICAR HCT [Concomitant]
  2. CITRUCEL [Concomitant]
  3. THERATEARS [Concomitant]
  4. LOVAZA [Concomitant]
  5. CIMZIA [Suspect]
     Indication: CROHN'S DISEASE
     Dosage: SUBCUTANEOUS
     Route: 058
     Dates: start: 20110318
  6. OMEPRAZOLE [Concomitant]
  7. ARAVA [Concomitant]
  8. PLAQUENIL [Concomitant]
  9. LIPITOR [Concomitant]
  10. RESTASIS [Concomitant]

REACTIONS (3)
  - SINUS CONGESTION [None]
  - EYE INFLAMMATION [None]
  - DRUG ADMINISTRATION ERROR [None]
